FAERS Safety Report 4961907-X (Version None)
Quarter: 2006Q2

REPORT INFORMATION
  Report Type: 
  Country: None (occurrence: None)
  Receive Date: 20060404
  Receipt Date: 20060315
  Transmission Date: 20061013
  Serious: Yes (Life-Threatening, Other)
  Sender: FDA-Public Use
  Company Number: PHBS2006JP04180

PATIENT
  Age: 21 Year
  Sex: Male

DRUGS (2)
  1. SOLANAX [Suspect]
     Route: 048
  2. TOFRANIL [Suspect]
     Route: 048

REACTIONS (7)
  - BLOOD CREATINE PHOSPHOKINASE INCREASED [None]
  - COMA [None]
  - DEPRESSED LEVEL OF CONSCIOUSNESS [None]
  - HYPOTHERMIA [None]
  - INTENTIONAL OVERDOSE [None]
  - PNEUMONIA ASPIRATION [None]
  - SUICIDE ATTEMPT [None]
